FAERS Safety Report 4854125-7 (Version None)
Quarter: 2005Q4

REPORT INFORMATION
  Report Type: 
  Country: None (occurrence: None)
  Receive Date: 20051125
  Receipt Date: 20050706
  Transmission Date: 20060501
  Serious: Yes (Hospitalization, Other)
  Sender: FDA-Public Use
  Company Number: US-JNJFOC-20050503802

PATIENT
  Age: 81 Year
  Sex: Female
  Weight: 39.9165 kg

DRUGS (10)
  1. LEVAQUIN [Suspect]
     Dates: start: 20050408, end: 20050416
  2. MAXAIR [Concomitant]
  3. SPIRIVA (ANTICHOLINERGIC AGENTS) [Concomitant]
  4. NIFEDIPINE [Concomitant]
  5. ACETAMINOPHEN [Concomitant]
  6. DIOVAN [Concomitant]
  7. LOPRESSOR [Concomitant]
  8. ATIVAN [Concomitant]
  9. PROTONIX [Concomitant]
  10. PREDNISONE [Concomitant]

REACTIONS (1)
  - TENDON RUPTURE [None]
